FAERS Safety Report 6528377-1 (Version None)
Quarter: 2010Q1

REPORT INFORMATION
  Report Type: 
  Country: None (occurrence: None)
  Receive Date: 20100106
  Receipt Date: 20091230
  Transmission Date: 20100710
  Serious: Yes (Other)
  Sender: FDA-Public Use
  Company Number: BR-JNJFOC-20091207689

PATIENT
  Age: 33 Year
  Sex: Male
  Weight: 80 kg

DRUGS (2)
  1. INVEGA [Suspect]
     Indication: MOOD SWINGS
     Dosage: AT NIGHT
     Route: 048
  2. CARBOLITIUM [Concomitant]
     Indication: BIPOLAR DISORDER
     Dosage: TOOK FOR MORE THAN 2 YEARS
     Route: 048

REACTIONS (5)
  - COGNITIVE DISORDER [None]
  - DRUG PRESCRIBING ERROR [None]
  - DYSARTHRIA [None]
  - SEDATION [None]
  - SOMNOLENCE [None]
